FAERS Safety Report 5115026-2 (Version None)
Quarter: 2006Q3

REPORT INFORMATION
  Report Type: 
  Country: None (occurrence: None)
  Receive Date: 20060921
  Receipt Date: 20060909
  Transmission Date: 20061208
  Serious: Yes (Death)
  Sender: FDA-Public Use
  Company Number: CERZ-11289

PATIENT
  Age: 5 Year
  Sex: Female
  Weight: 8.58 kg

DRUGS (1)
  1. CEREZYME [Suspect]
     Indication: GAUCHER'S DISEASE
     Dosage: 60 U/KG Q3WKS IV
     Route: 042
     Dates: start: 20030601, end: 20060721

REACTIONS (10)
  - ABDOMINAL DISTENSION [None]
  - BRONCHOSPASM [None]
  - CARDIOPULMONARY FAILURE [None]
  - COUGH [None]
  - DYSPNOEA [None]
  - HAEMOGLOBIN DECREASED [None]
  - HEPATOSPLENOMEGALY [None]
  - LUNG INFECTION [None]
  - LYMPHADENOPATHY [None]
  - STRABISMUS [None]
